FAERS Safety Report 10461835 (Version 1)
Quarter: 2014Q3

REPORT INFORMATION
  Report Type: Spontaneous
  Country: US (occurrence: None)
  Receive Date: 20140916
  Receipt Date: 20140916
  Transmission Date: 20150326
  Serious: Yes (Other)
  Sender: FDA-Public Use
  Company Number: US-H14001-14-00528

PATIENT
  Age: 34 Year
  Sex: Female
  Weight: 83 kg

DRUGS (8)
  1. PHENYLEPHRINE [Suspect]
     Active Substance: PHENYLEPHRINE\PHENYLEPHRINE HYDROCHLORIDE
     Indication: SPINAL ANAESTHESIA
     Dosage: 25 MCG/MIN
     Route: 041
  2. BUPIVACAINE (BUPIVACAINE) (0.75 PERCENT, UNKNOWN) (BUPIVACAINE) [Suspect]
     Active Substance: BUPIVACAINE
     Indication: SPINAL ANAESTHESIA
     Route: 037
  3. SODIUM CITRATE (SODIUM CITRATE) (UNKNOWN) (SODIUM CITRATE) [Concomitant]
  4. ATROPINE (ATROPINE) (UNKNOWN) (ATROPINE) [Suspect]
     Active Substance: ATROPINE
     Indication: PRODUCT USED FOR UNKNOWN INDICATION
     Route: 042
  5. RINGER^S LACTRATE (COMPOUND SODIUM CHLORIDE /06440701/) (SOLUTION) (POTASSIUM CHLORIDE, SODIUM CHLORIDE, CALCIUM CHLORIDE) [Concomitant]
  6. OXYGEN (OXYGEN) (UNKNOWN) (OXYGEN) [Concomitant]
  7. MORPHINE (MORPHINE SULFATE) (UNKNOWN) (MORPHINE SULFATE) [Suspect]
     Active Substance: MORPHINE SULFATE
     Indication: SPINAL ANAESTHESIA
     Route: 037
  8. FENTANYL (FENTANYL) (UNKNOWN) (FENTANYL) [Suspect]
     Active Substance: FENTANYL
     Indication: SPINAL ANAESTHESIA
     Route: 037

REACTIONS (10)
  - Hypotension [None]
  - Nausea [None]
  - Bradycardia [None]
  - Atrioventricular block complete [None]
  - Blood pressure increased [None]
  - Dizziness [None]
  - Pallor [None]
  - Hyperhidrosis [None]
  - Headache [None]
  - Exposure during pregnancy [None]
